FAERS Safety Report 15409088 (Version 1)
Quarter: 2018Q3

REPORT INFORMATION
  Report Type: Spontaneous
  Country: LT (occurrence: LT)
  Receive Date: 20180920
  Receipt Date: 20180920
  Transmission Date: 20181010
  Serious: Yes (Hospitalization, Other)
  Sender: FDA-Public Use
  Company Number: LT-JNJFOC-20180918570

PATIENT
  Age: 63 Year
  Sex: Male

DRUGS (2)
  1. XARELTO [Suspect]
     Active Substance: RIVAROXABAN
     Indication: PULMONARY EMBOLISM
     Route: 048
     Dates: start: 2018, end: 2018
  2. AXITINIB [Concomitant]
     Active Substance: AXITINIB
     Indication: NEOPLASM MALIGNANT
     Route: 065
     Dates: end: 2018

REACTIONS (4)
  - Anaphylactic reaction [Unknown]
  - Haemoglobin decreased [Unknown]
  - Epistaxis [Not Recovered/Not Resolved]
  - Pharyngeal haemorrhage [Not Recovered/Not Resolved]

NARRATIVE: CASE EVENT DATE: 2018
